FAERS Safety Report 9165630 (Version 1)
Quarter: 2013Q1

REPORT INFORMATION
  Report Type: Spontaneous
  Country: US (occurrence: US)
  Receive Date: 20130315
  Receipt Date: 20130315
  Transmission Date: 20140127
  Serious: Yes (Hospitalization)
  Sender: FDA-Public Use
  Company Number: US-SANOFI-AVENTIS-2013SA024865

PATIENT
  Sex: Female

DRUGS (1)
  1. PLAVIX [Suspect]
     Route: 065

REACTIONS (6)
  - Hospitalisation [Unknown]
  - Pharyngeal oedema [Unknown]
  - Hyperhidrosis [Unknown]
  - Chills [Unknown]
  - Tongue disorder [Unknown]
  - Dysgeusia [Unknown]
